FAERS Safety Report 5406883-0 (Version None)
Quarter: 2007Q3

REPORT INFORMATION
  Report Type: 
  Country: None (occurrence: None)
  Receive Date: 20070807
  Receipt Date: 20070727
  Transmission Date: 20080115
  Serious: Yes (Hospitalization, Other)
  Sender: FDA-Public Use
  Company Number: GB-JNJFOC-20070706818

PATIENT
  Sex: Female
  Weight: 63 kg

DRUGS (10)
  1. REMICADE [Suspect]
     Indication: RHEUMATOID ARTHRITIS
     Route: 042
  2. FOLIC ACID [Concomitant]
  3. METHOTREXATE [Concomitant]
  4. PREDNISOLONE [Concomitant]
  5. ALENDRONIC ACID [Concomitant]
  6. MELOXICAM [Concomitant]
  7. OXYBUTYMIN [Concomitant]
  8. PROCHLORPERAZINE [Concomitant]
  9. RANITIDINE [Concomitant]
  10. AVEENS [Concomitant]

REACTIONS (3)
  - HYPOKINESIA [None]
  - PYREXIA [None]
  - TREMOR [None]
